FAERS Safety Report 5132782-8 (Version None)
Quarter: 2006Q4

REPORT INFORMATION
  Report Type: 
  Country: None (occurrence: None)
  Receive Date: 20061019
  Receipt Date: 20061019
  Transmission Date: 20070319
  Serious: Yes (Death)
  Sender: FDA-Public Use
  Company Number: None

PATIENT
  Age: 73 Year
  Sex: Male
  Weight: 124.7392 kg

DRUGS (1)
  1. PACLITAXEL [Suspect]
     Indication: LUNG NEOPLASM MALIGNANT
     Dosage: 114 MG   Q WEEK   IV
     Route: 042
     Dates: start: 20061017

REACTIONS (4)
  - CARDIO-RESPIRATORY ARREST [None]
  - DYSPHONIA [None]
  - DYSPNOEA [None]
  - INFUSION RELATED REACTION [None]
